FAERS Safety Report 17036984 (Version 2)
Quarter: 2019Q4

REPORT INFORMATION
  Report Type: Report from Study
  Country: US (occurrence: US)
  Receive Date: 20191115
  Receipt Date: 20191202
  Transmission Date: 20200122
  Serious: Yes (Death, Other)
  Sender: FDA-Public Use
  Company Number: US-ASTRAZENECA-2019SF51810

PATIENT
  Sex: Female

DRUGS (14)
  1. VITAMIN D3 [Concomitant]
     Active Substance: CHOLECALCIFEROL
     Dosage: 1000.0MG UNKNOWN
  2. TOVIAZ [Concomitant]
     Active Substance: FESOTERODINE FUMARATE
     Dosage: 4.0MG UNKNOWN
  3. ESCITALOPRAM [Concomitant]
     Active Substance: ESCITALOPRAM OXALATE
     Indication: ANXIETY
  4. CQ10 [Concomitant]
     Active Substance: UBIDECARENONE
     Dosage: 100.0MG UNKNOWN
  5. BIOTIN [Concomitant]
     Active Substance: BIOTIN
     Dosage: 8.0MG UNKNOWN
  6. TAGRISSO [Suspect]
     Active Substance: OSIMERTINIB
     Indication: METASTASES TO CENTRAL NERVOUS SYSTEM
     Route: 048
     Dates: start: 20171018, end: 20191105
  7. TOPROL XL [Suspect]
     Active Substance: METOPROLOL SUCCINATE
     Indication: BLOOD PRESSURE ABNORMAL
     Route: 065
     Dates: start: 201803
  8. ATIVAN [Concomitant]
     Active Substance: LORAZEPAM
  9. PLAVIX [Concomitant]
     Active Substance: CLOPIDOGREL BISULFATE
     Indication: ATRIAL FIBRILLATION
     Dosage: 75.0MG UNKNOWN
     Dates: start: 20191020
  10. CALCIUM MAGNESIUM [Concomitant]
     Active Substance: CALCIUM\MAGNESIUM
     Indication: MUSCLE SPASMS
  11. LOSARTAN. [Concomitant]
     Active Substance: LOSARTAN
  12. ASPIRIN. [Concomitant]
     Active Substance: ASPIRIN
     Indication: ATRIAL FIBRILLATION
     Dosage: 325.0MEQ/L UNKNOWN
     Dates: start: 20191020
  13. VIT D12 [Concomitant]
     Dosage: 1.0MG UNKNOWN
  14. ELAQUIS [Concomitant]

REACTIONS (10)
  - Metastases to central nervous system [Unknown]
  - Pneumonia [Fatal]
  - Blood pressure fluctuation [Unknown]
  - Nail disorder [Unknown]
  - Stress [Unknown]
  - Fatigue [Unknown]
  - Atrial fibrillation [Not Recovered/Not Resolved]
  - Diarrhoea [Unknown]
  - Product dose omission [Recovered/Resolved]
  - Malignant neoplasm progression [Unknown]

NARRATIVE: CASE EVENT DATE: 201903
